FAERS Safety Report 5292242-0 (Version None)
Quarter: 2007Q2

REPORT INFORMATION
  Report Type: 
  Country: None (occurrence: None)
  Receive Date: 20070410
  Receipt Date: 20070405
  Transmission Date: 20071010
  Serious: Yes (Other)
  Sender: FDA-Public Use
  Company Number: US-ABBOTT-07P-163-0361656-00

PATIENT
  Age: 11 Year
  Sex: Male

DRUGS (6)
  1. VALPROIC ACID [Suspect]
     Indication: EPILEPSY
     Route: 065
  2. RISPERDAL [Interacting]
     Indication: PSYCHOTIC DISORDER
  3. RISPERDAL [Interacting]
     Route: 065
  4. RISPERDAL [Interacting]
     Route: 065
  5. ETHOSUXIMIDE [Concomitant]
     Indication: EPILEPSY
     Dosage: UNKNOWN
  6. ETHOSUXIMIDE [Concomitant]
     Dosage: UNKNOWN

REACTIONS (3)
  - DRUG INTERACTION [None]
  - HYPERAMMONAEMIA [None]
  - MANIA [None]
